FAERS Safety Report 20699992 (Version 1)
Quarter: 2022Q2

REPORT INFORMATION
  Report Type: Spontaneous
  Country: US (occurrence: None)
  Receive Date: 20220409
  Receipt Date: 20220409
  Transmission Date: 20220721
  Serious: Yes (Other)
  Sender: FDA-Public Use
  Company Number: None

PATIENT
  Age: 63 Year
  Sex: Female

DRUGS (1)
  1. .DELTA.8-TETRAHYDROCANNABINOL\HERBALS [Suspect]
     Active Substance: .DELTA.8-TETRAHYDROCANNABINOL\HERBALS
     Indication: Analgesic therapy
     Dates: start: 20220408, end: 20220408

REACTIONS (4)
  - Anxiety [None]
  - Confusional state [None]
  - Hallucination [None]
  - Aphasia [None]

NARRATIVE: CASE EVENT DATE: 20220408
